FAERS Safety Report 16571962 (Version 1)
Quarter: 2019Q3

REPORT INFORMATION
  Report Type: Spontaneous
  Country: US (occurrence: US)
  Receive Date: 20190531
  Receipt Date: 20190531
  Transmission Date: 20191004
  Serious: No
  Sender: FDA-Public Use
  Company Number: None

PATIENT
  Age: 60 Year
  Sex: Female

DRUGS (1)
  1. CEFTRIAXONE SODIUM 1 GM [Suspect]
     Active Substance: CEFTRIAXONE SODIUM
     Indication: DEVICE RELATED INFECTION
     Dates: start: 20190525, end: 20190527

REACTIONS (3)
  - Genital discharge [None]
  - Feeling hot [None]
  - Vision blurred [None]

NARRATIVE: CASE EVENT DATE: 20190525
